FAERS Safety Report 6121813-4 (Version None)
Quarter: 2009Q1

REPORT INFORMATION
  Report Type: 
  Country: None (occurrence: None)
  Receive Date: 20090313
  Receipt Date: 20090313
  Transmission Date: 20090719
  Serious: Yes (Hospitalization)
  Sender: FDA-Public Use
  Company Number: None

PATIENT
  Age: 62 Year
  Sex: Male
  Weight: 104.8 kg

DRUGS (1)
  1. DIPHENHYDRAMINE [Suspect]
     Indication: ANTIALLERGIC THERAPY
     Dosage: 25 MG TID PO
     Route: 048
     Dates: start: 20090228, end: 20090304

REACTIONS (1)
  - DELIRIUM [None]
